FAERS Safety Report 7770165-2 (Version None)
Quarter: 2011Q3

REPORT INFORMATION
  Report Type: 
  Country: None (occurrence: None)
  Receive Date: 20110922
  Receipt Date: 20110418
  Transmission Date: 20111222
  Serious: Yes (Other)
  Sender: FDA-Public Use
  Company Number: US-ASTRAZENECA-2007UW25654

PATIENT
  Age: 489 Month
  Sex: Male
  Weight: 112.5 kg

DRUGS (5)
  1. HALDOL [Concomitant]
  2. PAMELOR [Concomitant]
  3. CELEXA [Concomitant]
  4. SEROQUEL [Suspect]
     Indication: DEPRESSION
     Dosage: 100 TO 200 MG PER DAY
     Route: 048
     Dates: start: 20040601, end: 20050901
  5. RISPERDAL [Concomitant]
     Dosage: 20 MG TO 30 MG PER DAY
     Dates: start: 20040101, end: 20050101

REACTIONS (2)
  - DIABETIC KETOACIDOSIS [None]
  - TYPE 2 DIABETES MELLITUS [None]
